FAERS Safety Report 4941680-1 (Version None)
Quarter: 2006Q1

REPORT INFORMATION
  Report Type: 
  Country: None (occurrence: None)
  Receive Date: 20060313
  Receipt Date: 20060301
  Transmission Date: 20060701
  Serious: Yes (Hospitalization)
  Sender: FDA-Public Use
  Company Number: US-ROCHE-438301

PATIENT
  Age: 53 Year
  Sex: Male

DRUGS (4)
  1. PEG-INTERFERON ALFA 2A (RO 25-8310) [Suspect]
     Route: 065
  2. PEG-INTERFERON ALFA 2A (RO 25-8310) [Suspect]
     Route: 065
  3. RIBAVIRIN [Suspect]
     Route: 065
  4. RIBAVIRIN [Suspect]
     Route: 065

REACTIONS (5)
  - BLOOD PRESSURE INCREASED [None]
  - CARDIAC FAILURE CONGESTIVE [None]
  - FLUID OVERLOAD [None]
  - TREATMENT NONCOMPLIANCE [None]
  - WEIGHT INCREASED [None]
